FAERS Safety Report 4676117-3 (Version None)
Quarter: 2005Q2

REPORT INFORMATION
  Report Type: 
  Country: None (occurrence: None)
  Receive Date: 20050527
  Receipt Date: 20050331
  Transmission Date: 20051028
  Serious: No
  Sender: FDA-Public Use
  Company Number: US-GLAXOSMITHKLINE-A0552009A

PATIENT
  Age: 41 Year
  Sex: Female

DRUGS (2)
  1. WELLBUTRIN XL [Suspect]
     Indication: BIPOLAR II DISORDER
     Dosage: 300MG IN THE MORNING
     Route: 048
     Dates: start: 20050317, end: 20050328
  2. BUPROPION HCL [Suspect]
     Indication: BIPOLAR II DISORDER
     Dosage: 200MG TWICE PER DAY
     Route: 048
     Dates: start: 20050201

REACTIONS (2)
  - HEADACHE [None]
  - PRURITUS [None]
